FAERS Safety Report 17030484 (Version 1)
Quarter: 2019Q4

REPORT INFORMATION
  Report Type: Spontaneous
  Country: DE (occurrence: DE)
  Receive Date: 20191114
  Receipt Date: 20191114
  Transmission Date: 20200122
  Serious: Yes (Other)
  Sender: FDA-Public Use
  Company Number: DE-PFIZER INC-2019486193

PATIENT

DRUGS (2)
  1. PEMBROLIZUMAB. [Suspect]
     Active Substance: PEMBROLIZUMAB
     Dosage: UNK
  2. AXITINIB [Suspect]
     Active Substance: AXITINIB
     Dosage: UNK

REACTIONS (1)
  - Sepsis [Recovered/Resolved]
